FAERS Safety Report 9805168 (Version 1)
Quarter: 2014Q1

REPORT INFORMATION
  Report Type: Spontaneous
  Country: US (occurrence: US)
  Receive Date: 20140109
  Receipt Date: 20140109
  Transmission Date: 20141002
  Serious: Yes (Hospitalization)
  Sender: FDA-Public Use
  Company Number: US-BIOGENIDEC-2013BI124467

PATIENT
  Age: 30 Year
  Sex: Female
  Weight: 111 kg

DRUGS (8)
  1. TECFIDERA [Suspect]
     Indication: MULTIPLE SCLEROSIS
     Route: 048
  2. SYNTHROID [Concomitant]
  3. AMLOD/BENAZP [Concomitant]
  4. HYDROCHLOROT [Concomitant]
  5. LEVOTHYROXIN [Concomitant]
  6. NORVASC [Concomitant]
  7. PROZAC [Concomitant]
  8. TYLENOL [Concomitant]

REACTIONS (9)
  - Helicobacter infection [Unknown]
  - Gastritis [Unknown]
  - Splenomegaly [Unknown]
  - Abdominal pain [Not Recovered/Not Resolved]
  - Hepatic enzyme increased [Recovered/Resolved]
  - Gastritis bacterial [Unknown]
  - Nausea [Unknown]
  - Vomiting [Unknown]
  - Decreased appetite [Unknown]
